FAERS Safety Report 5480126-4 (Version None)
Quarter: 2007Q4

REPORT INFORMATION
  Report Type: 
  Country: None (occurrence: None)
  Receive Date: 20071009
  Receipt Date: 20071003
  Transmission Date: 20080405
  Serious: Yes (Other)
  Sender: FDA-Public Use
  Company Number: PHBS2007BR16517

PATIENT
  Age: 32 Year
  Sex: Female
  Weight: 52 kg

DRUGS (4)
  1. MELLARIL [Suspect]
     Indication: MENTAL DISORDER
     Dosage: 25 MG, BID
     Route: 048
     Dates: start: 20060401
  2. MELLARIL [Suspect]
     Dosage: 25 MG/DAY
     Route: 048
  3. RIVOTRIL [Concomitant]
     Dosage: 4 MG, TID
     Route: 048
  4. AMPLICTIL [Concomitant]
     Indication: DEPRESSION

REACTIONS (10)
  - AGGRESSION [None]
  - CRYING [None]
  - DYSGEUSIA [None]
  - MALAISE [None]
  - SCREAMING [None]
  - SOMNOLENCE [None]
  - STOMATITIS [None]
  - SUICIDAL IDEATION [None]
  - WEIGHT DECREASED [None]
  - WEIGHT INCREASED [None]
